FAERS Safety Report 6475766-X (Version None)
Quarter: 2009Q4

REPORT INFORMATION
  Report Type: 
  Country: None (occurrence: None)
  Receive Date: 20091204
  Receipt Date: 20091201
  Transmission Date: 20100525
  Serious: Yes (Life-Threatening, Hospitalization)
  Sender: FDA-Public Use
  Company Number: ES-CELGENEUS-144-50794-09120138

PATIENT
  Age: 40 Year
  Sex: Male

DRUGS (2)
  1. VIDAZA [Suspect]
     Route: 058
  2. VIDAZA [Suspect]
     Route: 058
     Dates: start: 20090401

REACTIONS (1)
  - INFECTION [None]
